FAERS Safety Report 4545960-3 (Version None)
Quarter: 2005Q1

REPORT INFORMATION
  Report Type: 
  Country: None (occurrence: None)
  Receive Date: 20050106
  Receipt Date: 20050104
  Transmission Date: 20050727
  Serious: Yes (Hospitalization)
  Sender: FDA-Public Use
  Company Number: US-JNJFOC-20040900321

PATIENT
  Sex: Male
  Weight: 86.18 kg

DRUGS (4)
  1. DURAGESIC [Suspect]
     Route: 062
  2. AMBIEM [Concomitant]
     Indication: INSOMNIA
     Route: 049
  3. LORAZEPAM [Concomitant]
     Indication: ANXIETY
     Route: 049
  4. SIMVASTATIN [Concomitant]
     Route: 049

REACTIONS (4)
  - APPENDICITIS [None]
  - APPLICATION SITE PRURITUS [None]
  - CHILLS [None]
  - PAIN IN EXTREMITY [None]
